FAERS Safety Report 8529436-4 (Version None)
Quarter: 2012Q3

REPORT INFORMATION
  Report Type: 
  Country: None (occurrence: None)
  Receive Date: 20120723
  Receipt Date: 20120709
  Transmission Date: 20120928
  Serious: Yes (Congenital Anomaly)
  Sender: FDA-Public Use
  Company Number: DE-RANBAXY-2012RR-58151

PATIENT
  Sex: Female
  Weight: 0.472 kg

DRUGS (5)
  1. CIPROFLOXACIN [Concomitant]
     Dosage: 250 MG/DAY,ONLY 3 DAYS TAKEN BETWEEN GESTATIONAL WEEK 8 AND 9
     Route: 064
  2. ACETAMINOPHEN [Concomitant]
     Dosage: UNK
     Route: 064
  3. AMOXICILLIN [Concomitant]
     Dosage: UNK
     Route: 064
  4. FLUOXETINE HCL [Suspect]
     Dosage: 40 MG/DAY
     Route: 064
     Dates: start: 20100523
  5. FOLIC ACID [Concomitant]
     Indication: PROPHYLAXIS OF NEURAL TUBE DEFECT
     Dosage: 0.8 MG/DAY
     Route: 064

REACTIONS (3)
  - SPINA BIFIDA [None]
  - ARNOLD-CHIARI MALFORMATION [None]
  - HYDROCEPHALUS [None]
